FAERS Safety Report 12445856 (Version 1)
Quarter: 2016Q2

REPORT INFORMATION
  Report Type: Spontaneous
  Country: US (occurrence: US)
  Receive Date: 20160608
  Receipt Date: 20160608
  Transmission Date: 20160815
  Serious: No
  Sender: FDA-Public Use
  Company Number: US-JNJFOC-20160519611

PATIENT
  Age: 63 Year
  Sex: Female
  Weight: 99.79 kg

DRUGS (2)
  1. TYLENOL EXTRA STRENGTH [Suspect]
     Active Substance: ACETAMINOPHEN
     Indication: ARTHRALGIA
     Dosage: 1/4 TABLET
     Route: 048
     Dates: end: 201605
  2. TYLENOL EXTRA STRENGTH [Suspect]
     Active Substance: ACETAMINOPHEN
     Indication: ARTHRALGIA
     Dosage: ABOUT 1/3 OF TABLET
     Route: 048
     Dates: start: 201605, end: 20160517

REACTIONS (3)
  - Blood pressure abnormal [Recovered/Resolved]
  - Wrong technique in product usage process [Recovered/Resolved]
  - Heart rate increased [Recovered/Resolved]

NARRATIVE: CASE EVENT DATE: 20160515
